FAERS Safety Report 6616229-8 (Version None)
Quarter: 2010Q1

REPORT INFORMATION
  Report Type: 
  Country: None (occurrence: None)
  Receive Date: 20100305
  Receipt Date: 20100223
  Transmission Date: 20100710
  Serious: Yes (Other)
  Sender: FDA-Public Use
  Company Number: GB-WATSON-2010-01420

PATIENT
  Age: 30 Year
  Sex: Female

DRUGS (4)
  1. TOPIRAMATE [Suspect]
     Indication: INTRACRANIAL PRESSURE INCREASED
     Dosage: 100 MG, BID
     Dates: start: 20091124
  2. TOPIRAMATE [Suspect]
     Dosage: 25 MG, BID
     Dates: start: 20091003
  3. IMPLANON [Suspect]
     Indication: CONTRACEPTION
     Dosage: 1 DF, UNKNOWN
     Dates: start: 20080912
  4. IMPLANON [Suspect]
     Dosage: 1 DF, UNKNOWN
     Dates: start: 20091124

REACTIONS (5)
  - ABORTION SPONTANEOUS [None]
  - AMENORRHOEA [None]
  - DRUG EXPOSURE DURING PREGNANCY [None]
  - DRUG INTERACTION [None]
  - PREGNANCY WITH IMPLANT CONTRACEPTIVE [None]
